FAERS Safety Report 5194230-1 (Version None)
Quarter: 2006Q4

REPORT INFORMATION
  Report Type: 
  Country: None (occurrence: None)
  Receive Date: 20061228
  Receipt Date: 20061219
  Transmission Date: 20070319
  Serious: Yes (Other)
  Sender: FDA-Public Use
  Company Number: FR-PFIZER INC-2006155163

PATIENT
  Age: 55 Year
  Sex: Female

DRUGS (2)
  1. LYRICA [Suspect]
     Indication: PAIN
     Dosage: DAILY DOSE:600MG
  2. NEURONTIN [Suspect]
     Indication: PAIN
     Dosage: DAILY DOSE:1500MG

REACTIONS (3)
  - EYE SWELLING [None]
  - FACE OEDEMA [None]
  - SWOLLEN TONGUE [None]
